FAERS Safety Report 10706227 (Version 2)
Quarter: 2015Q1

REPORT INFORMATION
  Report Type: Report from Study
  Country: US (occurrence: US)
  Receive Date: 20150113
  Receipt Date: 20150113
  Transmission Date: 20150721
  Serious: Yes (Other)
  Sender: FDA-Public Use
  Company Number: US-THROMBOGENICS NV-CLI-2014-1345

PATIENT
  Age: 53 Year
  Sex: Female

DRUGS (4)
  1. JETREA [Suspect]
     Active Substance: OCRIPLASMIN
     Indication: VITREOUS ADHESIONS
     Dosage: 0.125 MG, ONE TIME DOSE
     Route: 031
     Dates: start: 20141009, end: 20141009
  2. LEVOTHYROXIN [Concomitant]
     Active Substance: LEVOTHYROXINE
     Indication: HYPOTHYROIDISM
     Dosage: 25 MG DAILY
     Route: 048
     Dates: start: 200301
  3. ATORVASTATIN [Concomitant]
     Active Substance: ATORVASTATIN
     Indication: HYPERCHOLESTEROLAEMIA
     Dosage: 5 MG DAILY
     Route: 048
     Dates: start: 200301
  4. FENOFIBRATE. [Concomitant]
     Active Substance: FENOFIBRATE
     Indication: BLOOD TRIGLYCERIDES INCREASED
     Dosage: 145 MG DAILY
     Route: 048
     Dates: start: 200301

REACTIONS (4)
  - Vitreous floaters [Recovered/Resolved]
  - Photopsia [Recovered/Resolved]
  - Metamorphopsia [Not Recovered/Not Resolved]
  - Chromatopsia [Recovered/Resolved]

NARRATIVE: CASE EVENT DATE: 20141009
